FAERS Safety Report 15130487 (Version 2)
Quarter: 2018Q3

REPORT INFORMATION
  Report Type: Report from Study
  Country: FR (occurrence: FR)
  Receive Date: 20180711
  Receipt Date: 20180821
  Transmission Date: 20181010
  Serious: Yes (Death, Other)
  Sender: FDA-Public Use
  Company Number: FR-JAZZ-2018-FR-010607

PATIENT

DRUGS (1)
  1. DEFITELIO [Suspect]
     Active Substance: DEFIBROTIDE SODIUM
     Indication: PROPHYLAXIS
     Dosage: 25 MG/KG, QD
     Dates: start: 20141218, end: 20150108

REACTIONS (4)
  - Death [Fatal]
  - Infection [Unknown]
  - Graft versus host disease [Unknown]
  - Hypotension [Unknown]

NARRATIVE: CASE EVENT DATE: 20150317
